FAERS Safety Report 21310941 (Version 1)
Quarter: 2022Q3

REPORT INFORMATION
  Report Type: Spontaneous
  Country: US (occurrence: None)
  Receive Date: 20220909
  Receipt Date: 20220909
  Transmission Date: 20221026
  Serious: No
  Sender: FDA-Public Use
  Company Number: US-ARIS GLOBAL-202112-2256

PATIENT
  Age: 67 Year
  Sex: Female

DRUGS (9)
  1. OXERVATE [Suspect]
     Active Substance: CENEGERMIN-BKBJ
     Indication: Neurotrophic keratopathy
     Route: 047
     Dates: start: 20211206
  2. DORZOLAMIDE [Concomitant]
     Active Substance: DORZOLAMIDE
  3. RESTASIS [Concomitant]
     Active Substance: CYCLOSPORINE
  4. MULTIVITAMIN 50 PLUS [Concomitant]
  5. GLUCOSAMINE-CHONDROITIN-MSM [Concomitant]
  6. TYLENOL 8HR [Concomitant]
     Active Substance: ACETAMINOPHEN
  7. KRILL OIL [Concomitant]
     Active Substance: DIETARY SUPPLEMENT\KRILL OIL
  8. THIAMINE HYDROCHLORIDE [Concomitant]
     Active Substance: THIAMINE HYDROCHLORIDE
  9. BRIMONIDINE TARTRATE [Concomitant]
     Active Substance: BRIMONIDINE TARTRATE

REACTIONS (4)
  - Wrong technique in product usage process [Unknown]
  - Ocular discomfort [Not Recovered/Not Resolved]
  - Ocular hyperaemia [Not Recovered/Not Resolved]
  - Eye pruritus [Not Recovered/Not Resolved]
